FAERS Safety Report 15634929 (Version 1)
Quarter: 2018Q4

REPORT INFORMATION
  Report Type: Report from Study
  Country: US (occurrence: US)
  Receive Date: 20181119
  Receipt Date: 20181119
  Transmission Date: 20190205
  Serious: Yes (Other)
  Sender: FDA-Public Use
  Company Number: US-BAYER-2018-208654

PATIENT
  Age: 67 Year
  Sex: Female

DRUGS (1)
  1. STIVARGA [Suspect]
     Active Substance: REGORAFENIB
     Indication: COLORECTAL CANCER
     Dosage: 120 MG, QD
     Route: 048
     Dates: start: 20180809

REACTIONS (6)
  - Mobility decreased [None]
  - Off label use [None]
  - Gait disturbance [Recovering/Resolving]
  - Packed red blood cell transfusion [None]
  - Pain in extremity [Recovering/Resolving]
  - Dizziness [Recovering/Resolving]
